FAERS Safety Report 25487222 (Version 1)
Quarter: 2025Q2

REPORT INFORMATION
  Report Type: Spontaneous
  Country: IT (occurrence: IT)
  Receive Date: 20250627
  Receipt Date: 20250627
  Transmission Date: 20250717
  Serious: Yes (Other)
  Sender: SANDOZ
  Company Number: IT-ROCHE-3239837

PATIENT
  Age: 15 Year
  Sex: Male

DRUGS (13)
  1. LAPINE T-LYMPHOCYTE IMMUNE GLOBULIN [Suspect]
     Active Substance: LAPINE T-LYMPHOCYTE IMMUNE GLOBULIN
     Indication: Prophylaxis against transplant rejection
     Route: 065
  2. LAPINE T-LYMPHOCYTE IMMUNE GLOBULIN [Suspect]
     Active Substance: LAPINE T-LYMPHOCYTE IMMUNE GLOBULIN
     Indication: Allogenic stem cell transplantation
  3. FLUDARABINE [Suspect]
     Active Substance: FLUDARABINE PHOSPHATE
     Indication: Prophylaxis against transplant rejection
     Route: 065
  4. FLUDARABINE [Suspect]
     Active Substance: FLUDARABINE PHOSPHATE
     Indication: Allogenic stem cell transplantation
  5. MYCOPHENOLATE MOFETIL [Suspect]
     Active Substance: MYCOPHENOLATE MOFETIL
     Indication: Cutaneous vasculitis
     Route: 065
  6. RITUXIMAB [Suspect]
     Active Substance: RITUXIMAB
     Indication: Prophylaxis against transplant rejection
     Route: 042
  7. RITUXIMAB [Suspect]
     Active Substance: RITUXIMAB
     Indication: Allogenic stem cell transplantation
  8. SIROLIMUS [Suspect]
     Active Substance: SIROLIMUS
     Indication: Cutaneous vasculitis
     Route: 065
  9. THIOTEPA [Suspect]
     Active Substance: THIOTEPA
     Indication: Prophylaxis against transplant rejection
     Route: 065
  10. THIOTEPA [Suspect]
     Active Substance: THIOTEPA
     Indication: Allogenic stem cell transplantation
  11. TREOSULFAN [Suspect]
     Active Substance: TREOSULFAN
     Indication: Allogenic stem cell transplantation
     Route: 065
  12. TREOSULFAN [Suspect]
     Active Substance: TREOSULFAN
     Indication: Prophylaxis against transplant rejection
     Route: 065
  13. SULFAMETHOXAZOLE\TRIMETHOPRIM [Concomitant]
     Active Substance: SULFAMETHOXAZOLE\TRIMETHOPRIM
     Indication: Prophylaxis
     Route: 065

REACTIONS (20)
  - Pneumonia staphylococcal [Unknown]
  - Typhoid fever [Unknown]
  - Viral haemorrhagic cystitis [Unknown]
  - JC virus infection [Unknown]
  - Progressive multifocal leukoencephalopathy [Unknown]
  - Cytomegalovirus viraemia [Unknown]
  - BK virus infection [Unknown]
  - Epstein-Barr viraemia [Unknown]
  - Human herpesvirus 6 infection [Unknown]
  - Encephalitis viral [Unknown]
  - Tremor [Not Recovered/Not Resolved]
  - Chronic graft versus host disease in skin [Recovered/Resolved]
  - Acute graft versus host disease in skin [Unknown]
  - Lymphadenitis [Unknown]
  - Ataxia [Not Recovered/Not Resolved]
  - Staphylococcal sepsis [Unknown]
  - Nervous system disorder [Not Recovered/Not Resolved]
  - Polyomavirus viraemia [Unknown]
  - Staphylococcal infection [Unknown]
  - Viraemia [Unknown]
